FAERS Safety Report 13212609 (Version 1)
Quarter: 2017Q1

REPORT INFORMATION
  Report Type: Spontaneous
  Country: US (occurrence: US)
  Receive Date: 20170210
  Receipt Date: 20170210
  Transmission Date: 20170428
  Serious: Yes (Hospitalization, Other)
  Sender: FDA-Public Use
  Company Number: None

PATIENT
  Age: 14 Year
  Sex: Male
  Weight: 45.5 kg

DRUGS (6)
  1. FOSAPREPITANT [Concomitant]
     Active Substance: FOSAPREPITANT
  2. ONDANSETRON [Concomitant]
     Active Substance: ONDANSETRON
  3. LORAZEPAM. [Concomitant]
     Active Substance: LORAZEPAM
  4. TOPOSAR [Suspect]
     Active Substance: ETOPOSIDE
     Indication: TERATOMA
     Route: 042
     Dates: start: 20170202, end: 20170202
  5. BLEOMYCIN [Concomitant]
     Active Substance: BLEOMYCIN SULFATE
  6. CISPLATIN/MANNITOL [Concomitant]

REACTIONS (4)
  - Feeling hot [None]
  - Dyspnoea [None]
  - Feeling abnormal [None]
  - Flushing [None]

NARRATIVE: CASE EVENT DATE: 20170202
